FAERS Safety Report 8767044 (Version 2)
Quarter: 2012Q4

REPORT INFORMATION
  Report Type: Report from Study
  Country: BR (occurrence: BR)
  Receive Date: 20120904
  Receipt Date: 20120906
  Transmission Date: 20130627
  Serious: Yes (Hospitalization, Other)
  Sender: FDA-Public Use
  Company Number: BR-PFIZER INC-2012213814

PATIENT
  Age: 72 Year
  Sex: Female
  Weight: 60 kg

DRUGS (7)
  1. LIPITOR [Suspect]
     Indication: BLOOD CHOLESTEROL ABNORMAL
     Dosage: 20 mg, 1x/day (one tablet daily)
     Route: 048
     Dates: start: 20090329
  2. ALDACTONE [Concomitant]
     Dosage: 50 mg, daily
     Dates: start: 2009
  3. AAS [Concomitant]
     Indication: CARDIOVASCULAR DISORDER
     Dosage: 100 mg, daily
     Dates: start: 2000
  4. HYDROCHLOROTHIAZIDE [Concomitant]
     Dosage: 50 mg, daily
     Dates: start: 2009
  5. LOSARTAN POTASSIUM [Concomitant]
     Indication: HYPERTENSION
     Dosage: 25 mg, UNK
     Dates: start: 2007
  6. SELOZOK [Concomitant]
     Indication: ARRHYTHMIA
     Dosage: 25 mg, daily
     Dates: start: 2009
  7. OMEPRAZOLE [Concomitant]
     Indication: GASTRIC DISORDER
     Dosage: 20 mg, daily
     Dates: start: 201104

REACTIONS (4)
  - Cardiac disorder [Unknown]
  - Osteoarthritis [Not Recovered/Not Resolved]
  - Cyst [Not Recovered/Not Resolved]
  - Gastrooesophageal reflux disease [Not Recovered/Not Resolved]
